FAERS Safety Report 4552694-8 (Version None)
Quarter: 2005Q1

REPORT INFORMATION
  Report Type: 
  Country: None (occurrence: None)
  Receive Date: 20050114
  Receipt Date: 20050110
  Transmission Date: 20050727
  Serious: Yes (Hospitalization)
  Sender: FDA-Public Use
  Company Number: 200510198US

PATIENT
  Age: 17 Year
  Sex: Female

DRUGS (2)
  1. LANTUS [Suspect]
     Indication: DIABETES MELLITUS INSULIN-DEPENDENT
     Dosage: DOSE UNIT: UNITS
  2. FAST ACTING INSULIN [Concomitant]

REACTIONS (2)
  - CARDIAC ARREST [None]
  - HYPOGLYCAEMIA [None]
